FAERS Safety Report 21206498 (Version 1)
Quarter: 2022Q3

REPORT INFORMATION
  Report Type: Spontaneous
  Country: US (occurrence: US)
  Receive Date: 20220812
  Receipt Date: 20220812
  Transmission Date: 20221027
  Serious: Yes (Other)
  Sender: FDA-Public Use
  Company Number: US-SUNBUM-2022-US-019336

PATIENT
  Sex: Male

DRUGS (1)
  1. SUN BUM SPF 70 PREMIUM MOISTURIZING SUNSCREEN (AVOBENZONE\HOMOSALATE\O [Suspect]
     Active Substance: AVOBENZONE\HOMOSALATE\OCTISALATE\OCTOCRYLENE
     Indication: Therapeutic skin care topical
     Dosage: APPLICATION TO FACE, ACCIDENTAL EYE EXPOSURE
     Route: 061
     Dates: start: 202208

REACTIONS (6)
  - Eye discharge [Unknown]
  - Eye irritation [Unknown]
  - Lacrimal haemorrhage [Unknown]
  - Eye pruritus [Unknown]
  - Chemical burns of eye [Unknown]
  - Accidental exposure to product [Unknown]

NARRATIVE: CASE EVENT DATE: 20220801
